FAERS Safety Report 5820801-2 (Version None)
Quarter: 2008Q3

REPORT INFORMATION
  Report Type: 
  Country: None (occurrence: None)
  Receive Date: 20080724
  Receipt Date: 20080513
  Transmission Date: 20090109
  Serious: No
  Sender: FDA-Public Use
  Company Number: A0728874A

PATIENT
  Sex: Female

DRUGS (5)
  1. AVANDIA [Suspect]
     Route: 048
     Dates: end: 20080101
  2. ACTOS [Suspect]
     Dosage: 30MG PER DAY
     Route: 048
  3. GLIPIZIDE [Concomitant]
  4. METFORMIN [Concomitant]
  5. ANTIHYPERTENSIVE [Concomitant]
     Indication: HYPERTENSION

REACTIONS (2)
  - DYSPNOEA [None]
  - WEIGHT INCREASED [None]
